FAERS Safety Report 24190192 (Version 2)
Quarter: 2024Q3

REPORT INFORMATION
  Report Type: Spontaneous
  Country: US (occurrence: US)
  Receive Date: 20240808
  Receipt Date: 20240918
  Transmission Date: 20241017
  Serious: No
  Sender: PFIZER
  Company Number: US-PFIZER INC-PV202400102126

PATIENT
  Age: 85 Year
  Sex: Male

DRUGS (1)
  1. INLYTA [Suspect]
     Active Substance: AXITINIB
     Dosage: UNK

REACTIONS (4)
  - Asthenia [Unknown]
  - Hypersomnia [Not Recovered/Not Resolved]
  - Protein total decreased [Unknown]
  - Blood iron decreased [Unknown]
